FAERS Safety Report 9210605 (Version 2)
Quarter: 2013Q2

REPORT INFORMATION
  Report Type: Spontaneous
  Country: DE (occurrence: DE)
  Receive Date: 20130404
  Receipt Date: 20130501
  Transmission Date: 20140414
  Serious: Yes (Hospitalization, Other)
  Sender: FDA-Public Use
  Company Number: DE-UCBSA-081983

PATIENT
  Age: 20 Year
  Sex: Female
  Weight: 94 kg

DRUGS (2)
  1. VIMPAT [Suspect]
     Dosage: 100 MG - 10-45 TABLET
     Dates: start: 20130326
  2. VIMPAT [Suspect]
     Dosage: DAILY DOSE : 200 MG
     Dates: end: 20130325

REACTIONS (7)
  - Suicide attempt [Recovered/Resolved]
  - Convulsion [Recovered/Resolved]
  - Sopor [Recovered/Resolved]
  - Tachycardia [Recovered/Resolved]
  - Vomiting [Recovered/Resolved]
  - Mydriasis [Recovered/Resolved]
  - Overdose [Recovered/Resolved]
